FAERS Safety Report 19858082 (Version 9)
Quarter: 2022Q2

REPORT INFORMATION
  Report Type: Spontaneous
  Country: CA (occurrence: CA)
  Receive Date: 20210921
  Receipt Date: 20220611
  Transmission Date: 20220720
  Serious: Yes (Hospitalization, Other)
  Sender: FDA-Public Use
  Company Number: CA-CELLTRION INC.-2021CA012784

PATIENT

DRUGS (12)
  1. INFLECTRA [Suspect]
     Active Substance: INFLIXIMAB-DYYB
     Indication: Crohn^s disease
     Dosage: 5 MG/KG, FIRST DOSE RECEIVED IN HOSPITAL
     Route: 042
     Dates: start: 20210806, end: 20210806
  2. INFLECTRA [Suspect]
     Active Substance: INFLIXIMAB-DYYB
     Dosage: 5 MG/KG, (Q 0, 2, 6 WEEKS THAN EVERY 8 WEEKS)
     Route: 042
     Dates: start: 20210913
  3. INFLECTRA [Suspect]
     Active Substance: INFLIXIMAB-DYYB
     Dosage: 5 MG/KG, (Q 0, 2, 6 WEEKS THAN EVERY 8 WEEKS)
     Route: 042
     Dates: start: 20210913
  4. INFLECTRA [Suspect]
     Active Substance: INFLIXIMAB-DYYB
     Dosage: 5 UG/KG, Q 0, 2, 6 WEEKS
     Route: 042
     Dates: start: 20210913
  5. INFLECTRA [Suspect]
     Active Substance: INFLIXIMAB-DYYB
     Dosage: 5 MG/KG, (Q 0, 2, 6 WEEKS THAN EVERY 8 WEEKS)
     Route: 042
     Dates: start: 20210929
  6. INFLECTRA [Suspect]
     Active Substance: INFLIXIMAB-DYYB
     Dosage: 5 MG/KG, (Q 0, 2, 6 WEEKS THAN EVERY 8 WEEKS)
     Route: 042
     Dates: start: 20211026
  7. INFLECTRA [Suspect]
     Active Substance: INFLIXIMAB-DYYB
     Dosage: 5 MG/KG, (Q 0, 2, 6 WEEKS THAN EVERY 8 WEEKS)
     Route: 042
     Dates: start: 20211221
  8. INFLECTRA [Suspect]
     Active Substance: INFLIXIMAB-DYYB
     Dosage: 5 MG/KG, (Q 0, 2, 6 WEEKS THAN EVERY 8 WEEKS)
     Route: 042
     Dates: start: 20220211
  9. INFLECTRA [Suspect]
     Active Substance: INFLIXIMAB-DYYB
     Dosage: 5 MG/KG, (Q 0, 2, 6 WEEKS THAN EVERY 8 WEEKS)
     Route: 042
     Dates: start: 20220405
  10. INFLECTRA [Suspect]
     Active Substance: INFLIXIMAB-DYYB
     Dosage: 5 MG/KG Q 2, 6 WEEKS THEN Q 8 WEEKS
     Route: 042
     Dates: start: 20220531
  11. AMOXICILLIN\CLAVULANATE POTASSIUM [Concomitant]
     Active Substance: AMOXICILLIN\CLAVULANATE POTASSIUM
     Dosage: 1 DF DOSAGE NOT AVAILABLE
     Route: 065
  12. PREDNISONE [Concomitant]
     Active Substance: PREDNISONE
     Dosage: 1 DF DOSAGE NOT AVAILABLE
     Route: 065

REACTIONS (21)
  - Seizure [Unknown]
  - Eating disorder [Unknown]
  - General physical health deterioration [Unknown]
  - Gait inability [Unknown]
  - Arthritis [Unknown]
  - Asthenia [Unknown]
  - Diarrhoea [Unknown]
  - Abdominal pain [Unknown]
  - Intestinal mucosal atrophy [Unknown]
  - Vomiting [Recovered/Resolved]
  - Nausea [Recovered/Resolved]
  - Feeling hot [Recovered/Resolved]
  - Erythema [Recovered/Resolved]
  - Off label use [Unknown]
  - Urinary tract infection [Not Recovered/Not Resolved]
  - Infusion related reaction [Recovered/Resolved]
  - Dyspnoea [Recovered/Resolved]
  - Tremor [Recovered/Resolved]
  - Chills [Recovered/Resolved]
  - Condition aggravated [Recovering/Resolving]
  - Weight increased [Unknown]

NARRATIVE: CASE EVENT DATE: 20210101
